FAERS Safety Report 8340009-9 (Version None)
Quarter: 2012Q2

REPORT INFORMATION
  Report Type: 
  Country: None (occurrence: None)
  Receive Date: 20120507
  Receipt Date: 20120502
  Transmission Date: 20120825
  Serious: Yes (Other)
  Sender: FDA-Public Use
  Company Number: US-PFIZER INC-2012098270

PATIENT
  Sex: Female
  Weight: 88.889 kg

DRUGS (8)
  1. SINGULAIR [Concomitant]
     Indication: ASTHMA
     Dosage: UNK
  2. FLEXERIL [Concomitant]
     Indication: BACK DISORDER
     Dosage: 10 MG, AS NEEDED
  3. ADVAIR DISKUS 100/50 [Concomitant]
     Indication: ASTHMA
     Dosage: UNK
  4. FISH OIL [Concomitant]
     Dosage: UNK
  5. PROTONIX [Suspect]
     Dosage: 40 MG, 2X/DAY
     Dates: end: 20120417
  6. PROTONIX [Suspect]
     Indication: GASTROOESOPHAGEAL REFLUX DISEASE
     Dosage: 40 MG, DAILY
  7. TYLENOL (CAPLET) [Suspect]
     Indication: PAIN
     Dosage: UNK
  8. PANTOPRAZOLE [Suspect]
     Indication: GASTROOESOPHAGEAL REFLUX DISEASE
     Dosage: UNK
     Dates: start: 20120419

REACTIONS (11)
  - BARRETT'S OESOPHAGUS [None]
  - DRUG INEFFECTIVE [None]
  - HYPERCHLORHYDRIA [None]
  - VOMITING [None]
  - REBOUND EFFECT [None]
  - IRRITABILITY [None]
  - CHOKING [None]
  - FEELING ABNORMAL [None]
  - UNDERDOSE [None]
  - BURNING SENSATION [None]
  - ABDOMINAL DISCOMFORT [None]
